FAERS Safety Report 10328265 (Version 2)
Quarter: 2014Q3

REPORT INFORMATION
  Report Type: Spontaneous
  Country: US (occurrence: US)
  Receive Date: 20140721
  Receipt Date: 20140911
  Transmission Date: 20150326
  Serious: Yes (Hospitalization, Other)
  Sender: FDA-Public Use
  Company Number: US-JNJFOC-20140707798

PATIENT
  Age: 49 Year
  Sex: Male
  Weight: 70.31 kg

DRUGS (5)
  1. ETHANOL [Suspect]
     Active Substance: ALCOHOL
     Indication: PRODUCT USED FOR UNKNOWN INDICATION
     Route: 065
  2. TYLENOL REGULAR STRENGTH [Suspect]
     Active Substance: ACETAMINOPHEN
     Indication: PAIN
     Dosage: 2 X 325 MG
     Route: 048
     Dates: start: 20080602, end: 20080609
  3. TYLENOL PM [Suspect]
     Active Substance: ACETAMINOPHEN\DIPHENHYDRAMINE
     Indication: PAIN
     Dosage: 2 X 325 MG, ONCE NIGHTLY
     Route: 048
     Dates: start: 20080602, end: 20080609
  4. TYLENOL REGULAR STRENGTH [Suspect]
     Active Substance: ACETAMINOPHEN
     Indication: HEADACHE
     Dosage: 2 X 325 MG
     Route: 048
     Dates: start: 20080602, end: 20080609
  5. TYLENOL PM [Suspect]
     Active Substance: ACETAMINOPHEN\DIPHENHYDRAMINE
     Indication: SLEEP DISORDER THERAPY
     Dosage: 2 X 325 MG, ONCE NIGHTLY
     Route: 048
     Dates: start: 20080602, end: 20080609

REACTIONS (3)
  - Acute hepatic failure [Unknown]
  - Hepatitis toxic [Unknown]
  - Hepatotoxicity [Unknown]

NARRATIVE: CASE EVENT DATE: 200806
